FAERS Safety Report 7579665-1 (Version None)
Quarter: 2011Q2

REPORT INFORMATION
  Report Type: 
  Country: None (occurrence: None)
  Receive Date: 20110629
  Receipt Date: 20110610
  Transmission Date: 20111010
  Serious: Yes (Hospitalization)
  Sender: FDA-Public Use
  Company Number: US-BAYER-201036480NA

PATIENT
  Age: 34 Year
  Sex: Female
  Weight: 60 kg

DRUGS (17)
  1. YASMIN [Suspect]
     Indication: CONTRACEPTION
     Dosage: UNK
     Dates: start: 20031001, end: 20040801
  2. ETODOLAC [Concomitant]
  3. SKELAXIN [Concomitant]
     Dosage: 800 MG, QD
     Route: 048
  4. PROZAC [Concomitant]
     Dosage: 20 MG, QD
     Route: 048
  5. OMEPRAZOLE [Concomitant]
     Dosage: 20 MG, UNK
     Route: 048
  6. ACIPHEX [Concomitant]
     Dosage: 20 MG, UNK
     Route: 048
  7. KLONOPIN [Concomitant]
  8. AMBIEN [Concomitant]
     Dosage: 10 MG, AT NIGHT
  9. PHENAZOPYRIDINE HCL TAB [Concomitant]
  10. PRAVACHOL [Concomitant]
     Dosage: 40 MG, UNK
     Route: 048
  11. AMOXICILLIN AND CLAVULANATE POTASSIUM [Concomitant]
     Dosage: 875 MG, BID
  12. CIPROFLOXACIN HCL [Concomitant]
     Dosage: 500 MG, UNK
     Route: 048
  13. PHENAZOPYRIDINE HCL TAB [Concomitant]
     Dosage: 200 MG, TID
     Route: 048
  14. SULFAMETHOXAZOLE AND TRIMETHOPRIM [Concomitant]
     Dosage: 800/160 MG, BID
     Route: 048
  15. RANITIDINE [Concomitant]
     Dosage: 300 MG, UNK
  16. PREVACID [Concomitant]
     Dosage: 30 MG, AT NIGHT
     Route: 048
  17. PROPOXYPHENE NAPSYLATE W/ ACETAMINOPHEN [Concomitant]
     Dosage: 650 MG, PRN

REACTIONS (7)
  - CAROTID ARTERY DISSECTION [None]
  - COGNITIVE DISORDER [None]
  - CEREBROVASCULAR ACCIDENT [None]
  - EMBOLIC STROKE [None]
  - AMNESIA [None]
  - CONVULSION [None]
  - TRANSIENT ISCHAEMIC ATTACK [None]
